FAERS Safety Report 5397831-0 (Version None)
Quarter: 2007Q3

REPORT INFORMATION
  Report Type: 
  Country: None (occurrence: None)
  Receive Date: 20070724
  Receipt Date: 20070724
  Transmission Date: 20080115
  Serious: Yes (Hospitalization)
  Sender: FDA-Public Use
  Company Number: None

PATIENT
  Age: 2 Year
  Sex: Female
  Weight: 14.5 kg

DRUGS (1)
  1. CEFTRIAXONE [Suspect]
     Indication: INFECTION
     Dosage: 700MG ONCE IM   1 DOSE
     Route: 030
     Dates: start: 20070720, end: 20070720

REACTIONS (1)
  - CONVULSION [None]
